FAERS Safety Report 24173923 (Version 1)
Quarter: 2024Q3

REPORT INFORMATION
  Report Type: Spontaneous
  Country: US (occurrence: US)
  Receive Date: 20240805
  Receipt Date: 20240805
  Transmission Date: 20241016
  Serious: No
  Sender: TEVA
  Company Number: US-TEVA-VS-3225448

PATIENT
  Age: 74 Year
  Sex: Female

DRUGS (1)
  1. AJOVY [Suspect]
     Active Substance: FREMANEZUMAB-VFRM
     Indication: Product used for unknown indication
     Dosage: STRENGTH: 225/1.5 MG/ML, 1 PEN UNDER THE SKIN EVERY 30 DAYS
     Route: 058

REACTIONS (1)
  - Injection site pruritus [Unknown]
